FAERS Safety Report 4488098-6 (Version None)
Quarter: 2004Q4

REPORT INFORMATION
  Report Type: 
  Country: None (occurrence: None)
  Receive Date: 20041028
  Receipt Date: 20040917
  Transmission Date: 20050328
  Serious: Yes (Other)
  Sender: FDA-Public Use
  Company Number: DE-GLAXOSMITHKLINE-D0044704A

PATIENT
  Sex: Male

DRUGS (5)
  1. REQUIP [Suspect]
     Indication: PARKINSON'S DISEASE
     Dosage: 2MG SIX TIMES PER DAY
     Route: 048
     Dates: start: 20030501
  2. MADOPAR [Concomitant]
     Indication: PARKINSON'S DISEASE
     Dosage: 1TAB SIX TIMES PER DAY
     Route: 048
  3. ENTACAPONE [Concomitant]
     Indication: PARKINSON'S DISEASE
     Dosage: 200MG SIX TIMES PER DAY
     Route: 048
  4. AMANTADINE HCL [Concomitant]
     Indication: PARKINSON'S DISEASE
     Route: 065
  5. DIHYDROERGOCRYPTINE MESYLATE [Concomitant]
     Route: 065

REACTIONS (4)
  - BLOOD PRESSURE DECREASED [None]
  - DIFFICULTY IN WALKING [None]
  - FATIGUE [None]
  - SUDDEN ONSET OF SLEEP [None]
